FAERS Safety Report 14475109 (Version 1)
Quarter: 2018Q1

REPORT INFORMATION
  Report Type: Spontaneous
  Country: US (occurrence: US)
  Receive Date: 20180131
  Receipt Date: 20180131
  Transmission Date: 20180509
  Serious: No
  Sender: FDA-Public Use
  Company Number: None

PATIENT
  Age: 59 Year
  Sex: Female

DRUGS (1)
  1. ESTRADIOL TRANSDERMAL SYSTEM [Suspect]
     Active Substance: ESTRADIOL
     Dosage: ?          OTHER FREQUENCY:TWICE WEEKLY;?
     Route: 061
     Dates: start: 20171128, end: 20180131

REACTIONS (1)
  - Application site rash [None]

NARRATIVE: CASE EVENT DATE: 20180131
